FAERS Safety Report 16536976 (Version 7)
Quarter: 2020Q2

REPORT INFORMATION
  Report Type: Report from Study
  Country: IL (occurrence: IL)
  Receive Date: 20190707
  Receipt Date: 20200601
  Transmission Date: 20200713
  Serious: Yes (Life-Threatening, Hospitalization, Other)
  Sender: FDA-Public Use
  Company Number: PHHY2019IL151495

PATIENT
  Age: 7 Year
  Sex: Male
  Weight: 72 kg

DRUGS (4)
  1. DABRAFENIB [Suspect]
     Active Substance: DABRAFENIB
     Dosage: 250 MG
     Route: 048
     Dates: start: 20190524, end: 20200218
  2. DABRAFENIB [Suspect]
     Active Substance: DABRAFENIB
     Indication: GANGLIOGLIOMA
     Dosage: 125 MG, BID
     Route: 048
     Dates: start: 20190522, end: 20191221
  3. DABRAFENIB [Suspect]
     Active Substance: DABRAFENIB
     Dosage: 100 MG, BID
     Route: 048
     Dates: start: 20190716, end: 20200216
  4. DABRAFENIB [Suspect]
     Active Substance: DABRAFENIB
     Dosage: 100 MG, BID
     Route: 048
     Dates: start: 20200216, end: 20200216

REACTIONS (15)
  - Hypoxia [Recovering/Resolving]
  - Chest pain [Recovered/Resolved]
  - Pyrexia [Recovered/Resolved]
  - Lymphadenopathy mediastinal [Recovered/Resolved]
  - Snoring [Not Recovered/Not Resolved]
  - Pneumonia [Recovered/Resolved]
  - Viral infection [Recovered/Resolved]
  - Dyspnoea [Recovered/Resolved]
  - Respiratory distress [Unknown]
  - Lymphadenopathy mediastinal [Recovered/Resolved with Sequelae]
  - Pyrexia [Recovered/Resolved]
  - Pneumonitis [Unknown]
  - Stridor [Unknown]
  - Oxygen saturation decreased [Unknown]
  - Bronchial obstruction [Not Recovered/Not Resolved]

NARRATIVE: CASE EVENT DATE: 20190625
